FAERS Safety Report 9262071 (Version 2)
Quarter: 2013Q2

REPORT INFORMATION
  Report Type: Report from Study
  Country: CO (occurrence: CO)
  Receive Date: 20130430
  Receipt Date: 20130506
  Transmission Date: 20140414
  Serious: Yes (Other)
  Sender: FDA-Public Use
  Company Number: CO-ROCHE-1219364

PATIENT
  Sex: Male

DRUGS (6)
  1. LUCENTIS [Suspect]
     Indication: DIABETIC RETINAL OEDEMA
     Route: 050
     Dates: start: 20130206
  2. LUCENTIS [Suspect]
     Route: 050
     Dates: start: 201304, end: 201304
  3. INSULIN [Concomitant]
     Route: 065
  4. ENALAPRIL [Concomitant]
  5. METFORMIN [Concomitant]
     Route: 065
  6. OMEPRAZOLE [Concomitant]

REACTIONS (1)
  - Eye haemorrhage [Recovered/Resolved]
